FAERS Safety Report 14388184 (Version 2)
Quarter: 2018Q2

REPORT INFORMATION
  Report Type: Spontaneous
  Country: US (occurrence: US)
  Receive Date: 20180115
  Receipt Date: 20180625
  Transmission Date: 20180711
  Serious: Yes (Other)
  Sender: FDA-Public Use
  Company Number: US-SA-2017SA215219

PATIENT
  Age: 43 Year
  Sex: Female
  Weight: 90 kg

DRUGS (9)
  1. TAXOTERE [Suspect]
     Active Substance: DOCETAXEL
     Indication: BREAST CANCER FEMALE
     Dosage: 150 MG, Q3W
     Route: 042
     Dates: start: 20060929, end: 20060929
  2. NEOSAR [Concomitant]
     Active Substance: CYCLOPHOSPHAMIDE
  3. PHENERGAN [PROMETHAZINE] [Concomitant]
  4. ADRIAMYCIN [DOXORUBICIN] [Concomitant]
  5. CYTOXAN [Concomitant]
     Active Substance: CYCLOPHOSPHAMIDE
  6. ANZEMET [Concomitant]
     Active Substance: DOLASETRON MESYLATE
  7. NEULASTA [Concomitant]
     Active Substance: PEGFILGRASTIM
  8. EMEND [APREPITANT] [Concomitant]
  9. TAXOTERE [Suspect]
     Active Substance: DOCETAXEL
     Dosage: 150 MG, Q3W
     Route: 042
     Dates: start: 20070111, end: 20070111

REACTIONS (1)
  - Alopecia [Not Recovered/Not Resolved]

NARRATIVE: CASE EVENT DATE: 20070711
